FAERS Safety Report 9518586 (Version 2)
Quarter: 2014Q3

REPORT INFORMATION
  Report Type: Spontaneous
  Country: US (occurrence: None)
  Receive Date: 20130910
  Receipt Date: 20140930
  Transmission Date: 20150326
  Serious: Yes (Hospitalization, Other)
  Sender: FDA-Public Use
  Company Number: CO-KP-US-2013-019

PATIENT
  Age: 28 Year
  Sex: Male

DRUGS (2)
  1. CLONIDINE. [Suspect]
     Active Substance: CLONIDINE
     Indication: HYPERTENSION
  2. CLONAZEPAM (CLONAZEPAM) (CLONAZEPAM) [Concomitant]
     Active Substance: CLONAZEPAM

REACTIONS (10)
  - Hypercapnia [None]
  - Suicide attempt [None]
  - Depression [None]
  - Intentional overdose [None]
  - Stress [None]
  - Blood pressure increased [None]
  - Respiratory acidosis [None]
  - Drug abuse [None]
  - Drug screen positive [None]
  - Sinus bradycardia [None]
